FAERS Safety Report 4444098-3 (Version None)
Quarter: 2004Q3

REPORT INFORMATION
  Report Type: 
  Country: None (occurrence: None)
  Receive Date: 20040729
  Receipt Date: 20030820
  Transmission Date: 20050211
  Serious: No
  Sender: FDA-Public Use
  Company Number: USA-2003-0009214

PATIENT
  Age: 100 Year
  Sex: Female

DRUGS (3)
  1. MS CONTIN [Suspect]
     Indication: PAIN
     Dosage: 15 MG, SINGLE
  2. ASPIRIN [Concomitant]
  3. MULTI-VITAMINS [Concomitant]

REACTIONS (2)
  - COMA [None]
  - PRESCRIBED OVERDOSE [None]
